FAERS Safety Report 16821712 (Version 17)
Quarter: 2021Q1

REPORT INFORMATION
  Report Type: Other
  Country: FR (occurrence: FR)
  Receive Date: 20190918
  Receipt Date: 20210324
  Transmission Date: 20210419
  Serious: Yes (Hospitalization, Other)
  Sender: FDA-Public Use
  Company Number: FR-ROCHE-2409584

PATIENT
  Age: 58 Year
  Sex: Female
  Weight: 36.4 kg

DRUGS (8)
  1. ATEZOLIZUMAB. [Suspect]
     Active Substance: ATEZOLIZUMAB
     Indication: NON-SMALL CELL LUNG CANCER METASTATIC
     Dosage: SUBSEQUENT THERAPY: 19/JUN/2019 AND 17/JUL/2019 RECEIVED DOSE OF ATEZOLIZUMAB?ON 17/JUL/2019, SHE RE
     Route: 042
     Dates: start: 20190529
  2. LEVOFOLINATE [Concomitant]
     Active Substance: LEVOLEUCOVORIN CALCIUM
     Indication: NEOPLASM MALIGNANT
     Dates: start: 1936
  3. GEMCITABINE. [Concomitant]
     Active Substance: GEMCITABINE
     Dates: start: 20190904, end: 20191127
  4. FLUORO?URACILE [Concomitant]
     Active Substance: FLUOROURACIL
     Indication: NEOPLASM MALIGNANT
  5. PAROXETINE. [Concomitant]
     Active Substance: PAROXETINE
  6. DIFFU K [Concomitant]
     Active Substance: POTASSIUM CHLORIDE
     Indication: HYPOKALAEMIA
     Dates: start: 20191215
  7. CARBOPLATIN. [Suspect]
     Active Substance: CARBOPLATIN
     Indication: NON-SMALL CELL LUNG CANCER METASTATIC
     Route: 065
     Dates: start: 20190904, end: 20191127
  8. CISPLATINE [Concomitant]
     Active Substance: CISPLATIN
     Indication: NEOPLASM MALIGNANT

REACTIONS (9)
  - Thrombocytopenia [Recovered/Resolved]
  - Cough [Recovered/Resolved]
  - Dysphagia [Recovered/Resolved with Sequelae]
  - Weight decreased [Not Recovered/Not Resolved]
  - Neutropenia [Recovered/Resolved]
  - Asthenia [Unknown]
  - Abdominal pain upper [Recovered/Resolved]
  - Systemic inflammatory response syndrome [Not Recovered/Not Resolved]
  - Anaemia [Not Recovered/Not Resolved]

NARRATIVE: CASE EVENT DATE: 20190531
